FAERS Safety Report 16159484 (Version 2)
Quarter: 2019Q2

REPORT INFORMATION
  Report Type: Spontaneous
  Country: JP (occurrence: JP)
  Receive Date: 20190404
  Receipt Date: 20190502
  Transmission Date: 20190711
  Serious: No
  Sender: FDA-Public Use
  Company Number: JP-JNJFOC-20171233795

PATIENT
  Age: 7 Decade
  Sex: Male

DRUGS (4)
  1. BEZATOL [Concomitant]
     Active Substance: BEZAFIBRATE
     Route: 048
     Dates: start: 20160725, end: 20170912
  2. BEZATOL [Concomitant]
     Active Substance: BEZAFIBRATE
     Route: 048
     Dates: start: 20170913
  3. DIOVAN [Concomitant]
     Active Substance: VALSARTAN
     Route: 048
     Dates: start: 20151207
  4. CANAGLU [Suspect]
     Active Substance: CANAGLIFLOZIN
     Indication: TYPE 2 DIABETES MELLITUS
     Route: 048
     Dates: start: 20151207

REACTIONS (2)
  - Blood triglycerides increased [Unknown]
  - Upper respiratory tract inflammation [Recovered/Resolved]

NARRATIVE: CASE EVENT DATE: 20170720
